FAERS Safety Report 4591418-5 (Version None)
Quarter: 2005Q1

REPORT INFORMATION
  Report Type: 
  Country: None (occurrence: None)
  Receive Date: 20050222
  Receipt Date: 20050211
  Transmission Date: 20050727
  Serious: Yes (Death)
  Sender: FDA-Public Use
  Company Number: 2005-02-0939

PATIENT
  Age: 89 Year
  Sex: Male

DRUGS (1)
  1. EULEXIN [Suspect]
     Indication: PROSTATE CANCER
     Dosage: ORAL
     Route: 048

REACTIONS (1)
  - PNEUMONIA [None]
